FAERS Safety Report 5281301-4 (Version None)
Quarter: 2007Q1

REPORT INFORMATION
  Report Type: 
  Country: None (occurrence: None)
  Receive Date: 20061221
  Receipt Date: 20040419
  Transmission Date: 20070707
  Serious: No
  Sender: FDA-Public Use
  Company Number: 2004AC00077

PATIENT
  Age: 35 Year
  Sex: Female

DRUGS (6)
  1. SENSORCAINE [Suspect]
     Indication: ANAESTHESIA
     Dosage: 1 ML, IT
     Route: 037
  2. SENSORCAINE [Suspect]
     Indication: ANAESTHESIA
     Dosage: 0.5 ML, IT
     Route: 037
  3. SENSORCAINE [Suspect]
     Indication: ANAESTHESIA
     Dosage: 0.5 ML, IT
     Route: 037
  4. LACTATED RINGER'S [Concomitant]
  5. LABETALOL HCL [Concomitant]
  6. MAGNESIUM SULFATE [Concomitant]

REACTIONS (3)
  - BLOOD PRESSURE DECREASED [None]
  - DIZZINESS [None]
  - NAUSEA [None]
